FAERS Safety Report 6711480-0 (Version None)
Quarter: 2010Q2

REPORT INFORMATION
  Report Type: 
  Country: None (occurrence: None)
  Receive Date: 20100505
  Receipt Date: 20100428
  Transmission Date: 20101027
  Serious: Yes (Hospitalization)
  Sender: FDA-Public Use
  Company Number: US-KINGPHARMUSA00001-K200901190

PATIENT
  Age: 85 Year
  Sex: Female

DRUGS (7)
  1. ALTACE [Suspect]
     Indication: CARDIAC FAILURE
     Dosage: 1.25 MG, QD
     Route: 048
     Dates: start: 20090413, end: 20090422
  2. LASIX [Suspect]
     Indication: CARDIAC FAILURE
     Dosage: 40 MG, QD
     Route: 048
     Dates: start: 20090413, end: 20090422
  3. KARDEGIC [Concomitant]
     Dosage: UNK
     Route: 048
     Dates: start: 20090413
  4. TAHOR [Concomitant]
     Dosage: UNK
     Route: 048
     Dates: start: 20090413
  5. MOPRAL [Concomitant]
     Dosage: UNK
     Route: 048
     Dates: start: 20090413
  6. SURBRONC [Concomitant]
     Dosage: UNK
     Route: 048
     Dates: start: 20090413
  7. LOVENOX [Concomitant]
     Dosage: UNK
     Route: 058
     Dates: start: 20090413, end: 20090423

REACTIONS (10)
  - CEREBROVASCULAR ACCIDENT [None]
  - DEHYDRATION [None]
  - DISORIENTATION [None]
  - DRUG EFFECT INCREASED [None]
  - FACIAL PALSY [None]
  - FALL [None]
  - HYPONATRAEMIA [None]
  - HYPOTENSION [None]
  - SOMNOLENCE [None]
  - SPEECH DISORDER [None]
